FAERS Safety Report 8446316-3 (Version None)
Quarter: 2012Q2

REPORT INFORMATION
  Report Type: 
  Country: None (occurrence: None)
  Receive Date: 20120618
  Receipt Date: 20120612
  Transmission Date: 20120825
  Serious: Yes (Other)
  Sender: FDA-Public Use
  Company Number: PHHY2012BR051139

PATIENT
  Sex: Male

DRUGS (2)
  1. BUFFERIN [Suspect]
     Dosage: 2 DF, UNK
     Route: 048
  2. RASILEZ [Concomitant]
     Indication: HYPERTENSION
     Dosage: 1 DF, UNK
     Route: 048

REACTIONS (8)
  - ABDOMINAL PAIN UPPER [None]
  - MALAISE [None]
  - HEADACHE [None]
  - SCIATICA [None]
  - INCORRECT DRUG ADMINISTRATION DURATION [None]
  - BONE DISORDER [None]
  - DIABETES MELLITUS [None]
  - CARDIAC DISORDER [None]
